FAERS Safety Report 23272164 (Version 1)
Quarter: 2023Q4

REPORT INFORMATION
  Report Type: Spontaneous
  Country: US (occurrence: US)
  Receive Date: 20231207
  Receipt Date: 20231207
  Transmission Date: 20240109
  Serious: No
  Sender: FDA-Public Use
  Company Number: US-PHARMAESSENTIA CORPORATION-US-2023-PEC-002042

PATIENT
  Sex: Female

DRUGS (4)
  1. BESREMI [Suspect]
     Active Substance: ROPEGINTERFERON ALFA-2B-NJFT
     Indication: Polycythaemia vera
     Dosage: 100 MCG, Q2W, INCREASE DOSE 50 MICROGRAMS EVERY 2 WEEKS, INCREASE DOSE 50 MCG EVERY 2 WEEKS AS DIREC
     Route: 058
     Dates: start: 20230714
  2. BESREMI [Suspect]
     Active Substance: ROPEGINTERFERON ALFA-2B-NJFT
     Dosage: 250 MCG, Q2W
     Route: 058
  3. BESREMI [Suspect]
     Active Substance: ROPEGINTERFERON ALFA-2B-NJFT
     Dosage: 350 MCG, Q2W
     Route: 058
  4. BESREMI [Suspect]
     Active Substance: ROPEGINTERFERON ALFA-2B-NJFT
     Dosage: UNK
     Route: 058

REACTIONS (12)
  - Dyspepsia [Not Recovered/Not Resolved]
  - Sneezing [Unknown]
  - Skin haemorrhage [Recovered/Resolved]
  - Vomiting [Unknown]
  - Red blood cell count increased [Not Recovered/Not Resolved]
  - Oropharyngeal pain [Recovering/Resolving]
  - Injection site rash [Unknown]
  - Platelet count increased [Not Recovered/Not Resolved]
  - Fatigue [Not Recovered/Not Resolved]
  - Anaemia [Not Recovered/Not Resolved]
  - Diarrhoea [Unknown]
  - Influenza like illness [Recovering/Resolving]

NARRATIVE: CASE EVENT DATE: 20230715
